FAERS Safety Report 8251051-0 (Version None)
Quarter: 2012Q1

REPORT INFORMATION
  Report Type: 
  Country: None (occurrence: None)
  Receive Date: 20120328
  Receipt Date: 20120217
  Transmission Date: 20120608
  Serious: Yes (Other)
  Sender: FDA-Public Use
  Company Number: 2012SP008187

PATIENT
  Age: 21 Year
  Sex: Female
  Weight: 53.0709 kg

DRUGS (1)
  1. IMPLANON [Suspect]
     Indication: PRODUCT USED FOR UNKNOWN INDICATION
     Dates: start: 20110801

REACTIONS (2)
  - PREGNANCY WITH IMPLANT CONTRACEPTIVE [None]
  - ABORTION SPONTANEOUS [None]
